FAERS Safety Report 25311668 (Version 1)
Quarter: 2025Q2

REPORT INFORMATION
  Report Type: Spontaneous
  Country: US (occurrence: US)
  Receive Date: 20250514
  Receipt Date: 20250514
  Transmission Date: 20250717
  Serious: Yes (Other)
  Sender: COOPERSURGICAL
  Company Number: US-COOPERSURGICAL, INC.-2025CPS003763

PATIENT
  Age: 26 Year
  Sex: Female
  Weight: 79.365 kg

DRUGS (7)
  1. PARAGARD T 380A [Suspect]
     Active Substance: COPPER
     Indication: Contraception
     Route: 015
     Dates: start: 20121101
  2. GABAPENTIN [Concomitant]
     Active Substance: GABAPENTIN
     Dates: start: 2010
  3. ADDERALL [Concomitant]
     Active Substance: AMPHETAMINE ASPARTATE\AMPHETAMINE SULFATE\DEXTROAMPHETAMINE SACCHARATE\DEXTROAMPHETAMINE SULFATE
     Dates: start: 2007
  4. KLONOPIN [Concomitant]
     Active Substance: CLONAZEPAM
     Dates: start: 2007, end: 2014
  5. PERCOCET [Concomitant]
     Active Substance: ACETAMINOPHEN\OXYCODONE HYDROCHLORIDE
     Dates: start: 2012, end: 2015
  6. METHADONE [Concomitant]
     Active Substance: METHADONE HYDROCHLORIDE
     Dates: start: 2013, end: 2016
  7. VALIUM [Concomitant]
     Active Substance: DIAZEPAM
     Dates: start: 2013, end: 2014

REACTIONS (16)
  - Reproductive complication associated with device [Not Recovered/Not Resolved]
  - Abortion induced [Recovered/Resolved]
  - Hysterectomy [Recovered/Resolved]
  - Infertility female [Not Recovered/Not Resolved]
  - Device breakage [Recovered/Resolved]
  - Foreign body in reproductive tract [Recovered/Resolved]
  - Complication of device removal [Recovered/Resolved]
  - Device issue [Recovered/Resolved]
  - Depression [Unknown]
  - Anxiety [Unknown]
  - Emotional disorder [Unknown]
  - Sexual dysfunction [Unknown]
  - Menstrual disorder [Recovered/Resolved]
  - Heavy menstrual bleeding [Recovered/Resolved]
  - Dyspareunia [Recovered/Resolved]
  - Pelvic pain [Recovered/Resolved]

NARRATIVE: CASE EVENT DATE: 20130901
